FAERS Safety Report 16538380 (Version 1)
Quarter: 2019Q3

REPORT INFORMATION
  Report Type: Spontaneous
  Country: CN (occurrence: CN)
  Receive Date: 20190708
  Receipt Date: 20190708
  Transmission Date: 20191004
  Serious: Yes (Other)
  Sender: FDA-Public Use
  Company Number: CN-GLAXOSMITHKLINE-CN2019APC117908

PATIENT

DRUGS (1)
  1. CEFUROXIME SODIUM. [Suspect]
     Active Substance: CEFUROXIME SODIUM
     Indication: PNEUMONIA
     Dosage: 0.75 G, BID
     Route: 041
     Dates: start: 20190612, end: 20190612

REACTIONS (7)
  - Flushing [Recovered/Resolved]
  - Breath sounds abnormal [Recovered/Resolved]
  - Abdominal pain [Recovered/Resolved]
  - Pharyngeal oedema [Recovered/Resolved]
  - Pulmonary oedema [Recovered/Resolved]
  - Cough [Recovered/Resolved]
  - Rash generalised [Recovered/Resolved]

NARRATIVE: CASE EVENT DATE: 20190612
